FAERS Safety Report 19038023 (Version 1)
Quarter: 2021Q1

REPORT INFORMATION
  Report Type: Spontaneous
  Country: DE (occurrence: DE)
  Receive Date: 20210322
  Receipt Date: 20210322
  Transmission Date: 20210420
  Serious: Yes (Life-Threatening, Hospitalization, Other)
  Sender: FDA-Public Use
  Company Number: DE-ACCORD-219639

PATIENT
  Age: 54 Year
  Sex: Female

DRUGS (2)
  1. AMLODIPINE [Suspect]
     Active Substance: AMLODIPINE BESYLATE
     Route: 048
  2. BISOPROLOL [Suspect]
     Active Substance: BISOPROLOL
     Route: 048

REACTIONS (9)
  - Hypothermia [Recovering/Resolving]
  - Toxicity to various agents [Recovering/Resolving]
  - Intentional overdose [Unknown]
  - Pulseless electrical activity [Recovered/Resolved]
  - Renal impairment [Recovering/Resolving]
  - Suicide attempt [Unknown]
  - Cardiogenic shock [Recovering/Resolving]
  - Respiratory failure [Recovering/Resolving]
  - Cardiac arrest [Recovered/Resolved]
